FAERS Safety Report 6844244-8 (Version None)
Quarter: 2010Q3

REPORT INFORMATION
  Report Type: 
  Country: None (occurrence: None)
  Receive Date: 20100714
  Receipt Date: 20100714
  Transmission Date: 20110219
  Serious: Yes (Hospitalization)
  Sender: FDA-Public Use
  Company Number: None

PATIENT
  Age: 59 Year
  Sex: Male
  Weight: 86 kg

DRUGS (11)
  1. BEVACIZUMAB [Suspect]
     Indication: OESOPHAGEAL CANCER METASTATIC
     Dosage: 10MG/KG IV Q 3 WKS
     Route: 042
     Dates: start: 20100608
  2. CISPLATIN [Suspect]
     Indication: OESOPHAGEAL CANCER METASTATIC
     Dosage: 30MG/M2/65MG.M2IVD1+8
     Route: 042
     Dates: start: 20100618
  3. CISPLATIN [Suspect]
     Indication: OESOPHAGEAL CANCER METASTATIC
     Dosage: 30MG/M2/65MG.M2IVD1+8
     Route: 042
     Dates: start: 20100625
  4. BACLOFEN [Concomitant]
  5. COMPAZINE [Concomitant]
  6. DECADRON [Concomitant]
  7. LOMOTIL [Concomitant]
  8. LORAZEPAM [Concomitant]
  9. ZOFRAN [Concomitant]
  10. IRINOTECAN HCL [Suspect]
     Indication: OESOPHAGEAL CANCER METASTATIC
     Dosage: 30MG/M2/65MG.M2IVD1+8
     Route: 042
     Dates: start: 20100618
  11. IRINOTECAN HCL [Suspect]
     Indication: OESOPHAGEAL CANCER METASTATIC
     Dosage: 30MG/M2/65MG.M2IVD1+8
     Route: 042
     Dates: start: 20100625

REACTIONS (1)
  - DIARRHOEA [None]
